FAERS Safety Report 20479057 (Version 2)
Quarter: 2022Q1

REPORT INFORMATION
  Report Type: Spontaneous
  Country: JP (occurrence: JP)
  Receive Date: 20220216
  Receipt Date: 20220304
  Transmission Date: 20220423
  Serious: Yes (Other)
  Sender: FDA-Public Use
  Company Number: JP-TAKEDA-2022TJP017725

PATIENT
  Age: 80 Year
  Sex: Female

DRUGS (1)
  1. ZEJULA [Suspect]
     Active Substance: NIRAPARIB
     Indication: Ovarian cancer stage III
     Dosage: UNK UNK, QD
     Route: 048

REACTIONS (7)
  - Renal impairment [Unknown]
  - Metastases to peritoneum [Unknown]
  - Ovarian cancer [Unknown]
  - Disease progression [Unknown]
  - White blood cell count decreased [Unknown]
  - Platelet count decreased [Unknown]
  - Nausea [Unknown]
